FAERS Safety Report 4854366-9 (Version None)
Quarter: 2005Q4

REPORT INFORMATION
  Report Type: 
  Country: None (occurrence: None)
  Receive Date: 20051213
  Receipt Date: 20051213
  Transmission Date: 20060501
  Serious: Yes (Hospitalization)
  Sender: FDA-Public Use
  Company Number: None

PATIENT
  Age: 64 Year
  Sex: Female
  Weight: 81.6475 kg

DRUGS (4)
  1. FOSAMAX [Suspect]
     Indication: OSTEOPOROSIS PROPHYLAXIS
     Dosage: 1 TABLET ONCE A WEEK
     Dates: start: 20051205
  2. TYLENOL [Concomitant]
  3. SYNTHROID [Concomitant]
  4. ZANTAC [Concomitant]

REACTIONS (3)
  - BACK PAIN [None]
  - CHEST PAIN [None]
  - HEART RATE INCREASED [None]
